FAERS Safety Report 24410353 (Version 1)
Quarter: 2024Q4

REPORT INFORMATION
  Report Type: Spontaneous
  Country: IT (occurrence: IT)
  Receive Date: 20241008
  Receipt Date: 20241008
  Transmission Date: 20250115
  Serious: Yes (Death, Hospitalization, Other)
  Sender: RANBAXY
  Company Number: IT-EMA-DD-20240805-7482711-125940

PATIENT
  Age: 46 Year
  Sex: Male

DRUGS (5)
  1. CYCLOSPORINE [Suspect]
     Active Substance: CYCLOSPORINE
     Indication: Aplastic anaemia
     Dosage: UNK
     Route: 065
  2. DEFIBROTIDE [Suspect]
     Active Substance: DEFIBROTIDE (BOVINE)
     Indication: Venoocclusive liver disease
     Dosage: DAY 12 TO DAY 22
     Route: 065
  3. FLUDARABINE [Suspect]
     Active Substance: FLUDARABINE PHOSPHATE
     Indication: Aplastic anaemia
     Dosage: UNK
     Route: 065
  4. BUSULFAN [Suspect]
     Active Substance: BUSULFAN
     Indication: Aplastic anaemia
     Dosage: UNK
     Route: 065
  5. THIOTEPA [Suspect]
     Active Substance: THIOTEPA
     Indication: Bone marrow conditioning regimen
     Dosage: UNK
     Route: 065

REACTIONS (20)
  - Pyrexia [Fatal]
  - Melaena [Fatal]
  - Duodenal ulcer [Fatal]
  - Epstein-Barr virus infection [Fatal]
  - Duodenitis [Fatal]
  - Apoptosis [Fatal]
  - Mucocutaneous ulceration [Fatal]
  - Venoocclusive liver disease [Recovered/Resolved]
  - Hyperplasia [Fatal]
  - Hypotension [Fatal]
  - Intestinal haemorrhage [Fatal]
  - Mucosal erosion [Fatal]
  - Rectal haemorrhage [Fatal]
  - Enterocolitis viral [Fatal]
  - Sepsis [Fatal]
  - Tachycardia [Fatal]
  - Jejunal ulcer [Fatal]
  - Acute graft versus host disease in intestine [Unknown]
  - Cardiac arrest [Fatal]
  - Tachycardia [Unknown]
